FAERS Safety Report 8494558-3 (Version None)
Quarter: 2012Q3

REPORT INFORMATION
  Report Type: 
  Country: None (occurrence: None)
  Receive Date: 20120709
  Receipt Date: 20120703
  Transmission Date: 20120928
  Serious: Yes (Hospitalization, Other)
  Sender: FDA-Public Use
  Company Number: PHHY2012FR057783

PATIENT
  Sex: Male

DRUGS (12)
  1. NEXIUM [Suspect]
     Route: 048
     Dates: start: 20120501, end: 20120524
  2. ALDACTONE [Concomitant]
  3. KARDEGIC [Concomitant]
  4. LASIX [Concomitant]
  5. VALACYCLOVIR HYDROCHLORIDE [Suspect]
     Dates: start: 20120503, end: 20120524
  6. ATACAND [Concomitant]
  7. KEPPRA [Concomitant]
     Dates: start: 20120512
  8. SIMVASTATIN [Concomitant]
  9. GLIMEPIRIDE [Concomitant]
  10. ZYLORIC ^FRESENIUS^ [Concomitant]
  11. NEORAL [Suspect]
     Route: 048
     Dates: start: 20120505, end: 20120515
  12. ESIDRIX [Concomitant]

REACTIONS (8)
  - MYOCLONUS [None]
  - POSTICTAL STATE [None]
  - CONFUSIONAL STATE [None]
  - URINARY INCONTINENCE [None]
  - ENCEPHALOPATHY [None]
  - IMMUNOSUPPRESSANT DRUG LEVEL INCREASED [None]
  - CONVULSION [None]
  - AMMONIA INCREASED [None]
